FAERS Safety Report 5357021-4 (Version None)
Quarter: 2007Q2

REPORT INFORMATION
  Report Type: 
  Country: None (occurrence: None)
  Receive Date: 20070612
  Receipt Date: 20070612
  Transmission Date: 20071010
  Serious: Yes (Hospitalization)
  Sender: FDA-Public Use
  Company Number: None

PATIENT
  Age: 67 Year
  Sex: Female
  Weight: 78.4723 kg

DRUGS (2)
  1. DOXIL [Suspect]
     Indication: OVARIAN CANCER
     Dosage: 50MG/M2 Q28 DAYS IV
     Route: 042
     Dates: start: 20060411, end: 20070507
  2. ATRASENTAN [Suspect]
     Indication: OVARIAN CANCER
     Dosage: 10MG TAB QD PO
     Route: 048
     Dates: start: 20060411, end: 20070604

REACTIONS (3)
  - BONE GRAFT [None]
  - CERVICOBRACHIAL SYNDROME [None]
  - SPINAL OSTEOARTHRITIS [None]
